FAERS Safety Report 19506096 (Version 1)
Quarter: 2021Q3

REPORT INFORMATION
  Report Type: Report from Study
  Country: TR (occurrence: TR)
  Receive Date: 20210708
  Receipt Date: 20210708
  Transmission Date: 20211014
  Serious: Yes (Other)
  Sender: FDA-Public Use
  Company Number: TR-ALS-000320

PATIENT
  Age: 62 Year
  Sex: Female

DRUGS (1)
  1. METFORMIN [Suspect]
     Active Substance: METFORMIN HYDROCHLORIDE
     Indication: TYPE 2 DIABETES MELLITUS
     Route: 065

REACTIONS (8)
  - Sarcoidosis [Recovering/Resolving]
  - Chest pain [Unknown]
  - Thoracotomy [Unknown]
  - Non-small cell lung cancer [Unknown]
  - Asthenia [Unknown]
  - Pulmonary mass [Unknown]
  - Sputum purulent [Unknown]
  - Metastases to lymph nodes [Recovered/Resolved]

NARRATIVE: CASE EVENT DATE: 201402
